FAERS Safety Report 12267310 (Version 7)
Quarter: 2016Q4

REPORT INFORMATION
  Report Type: Report from Study
  Country: DK (occurrence: DK)
  Receive Date: 20160414
  Receipt Date: 20161202
  Transmission Date: 20170207
  Serious: Yes (Death, Hospitalization)
  Sender: FDA-Public Use
  Company Number: DK-CELGENEUS-DNK-2016023563

PATIENT
  Age: 77 Year
  Sex: Female
  Weight: 69.9 kg

DRUGS (41)
  1. REVLIMID [Suspect]
     Active Substance: LENALIDOMIDE
     Indication: MANTLE CELL LYMPHOMA
     Route: 048
     Dates: end: 20160323
  2. IBRUTINIB [Suspect]
     Active Substance: IBRUTINIB
     Route: 065
     Dates: start: 20160323
  3. PINEX [Concomitant]
     Active Substance: ACETAMINOPHEN
     Dosage: 1000MG
     Route: 048
     Dates: start: 20151228
  4. PINEX [Concomitant]
     Active Substance: ACETAMINOPHEN
     Route: 048
     Dates: start: 20160405
  5. RESONIUM [Concomitant]
     Active Substance: SODIUM POLYSTYRENE SULFONATE
     Indication: PRODUCT USED FOR UNKNOWN INDICATION
     Dosage: 15GM
     Route: 048
     Dates: start: 20160204, end: 20160205
  6. FURIX [Concomitant]
     Active Substance: FUROSEMIDE
     Indication: PRODUCT USED FOR UNKNOWN INDICATION
     Dosage: 40MG
     Route: 048
     Dates: start: 20160204, end: 20160205
  7. FORMO EASYHALER [Concomitant]
     Indication: CHRONIC OBSTRUCTIVE PULMONARY DISEASE
     Dosage: 24MICROGM
     Route: 055
     Dates: start: 20151221
  8. PRIMPERAN [Concomitant]
     Active Substance: METOCLOPRAMIDE HYDROCHLORIDE
     Indication: PROPHYLAXIS OF NAUSEA AND VOMITING
     Dosage: 10MG
     Route: 041
     Dates: start: 20160201, end: 20160212
  9. KONAKION [Concomitant]
     Active Substance: PHYTONADIONE
     Indication: PRODUCT USED FOR UNKNOWN INDICATION
     Dosage: 2MG
     Route: 041
     Dates: start: 20151228, end: 20151228
  10. MIDAZOLAM [Concomitant]
     Active Substance: MIDAZOLAM\MIDAZOLAM HYDROCHLORIDE
     Indication: PRODUCT USED FOR UNKNOWN INDICATION
     Route: 058
     Dates: start: 20160331
  11. KALEORID [Concomitant]
     Active Substance: POTASSIUM CHLORIDE
     Dosage: 750MG
     Route: 048
     Dates: start: 20160225, end: 20160228
  12. MAREVAN [Concomitant]
     Active Substance: WARFARIN SODIUM
     Indication: PRODUCT USED FOR UNKNOWN INDICATION
     Route: 048
     Dates: start: 20151222, end: 20160201
  13. MEROPENEM. [Concomitant]
     Active Substance: MEROPENEM
     Indication: PRODUCT USED FOR UNKNOWN INDICATION
     Dosage: 3000MG
     Route: 041
     Dates: start: 20160208, end: 20160211
  14. CIPROFLOXACIN. [Concomitant]
     Active Substance: CIPROFLOXACIN
     Indication: PRODUCT USED FOR UNKNOWN INDICATION
     Dosage: 1000MG
     Route: 048
     Dates: start: 20160108, end: 20160317
  15. FURIX [Concomitant]
     Active Substance: FUROSEMIDE
     Route: 058
     Dates: start: 20160405
  16. PHILEMON [Concomitant]
     Dosage: 15MICROGM
     Route: 065
     Dates: start: 20160210
  17. BUVENTOL [Concomitant]
     Indication: BRONCHOSPASM
     Dosage: 2000MICROGM
     Route: 055
     Dates: start: 20150723
  18. MORPHINE [Concomitant]
     Active Substance: MORPHINE
     Indication: PRODUCT USED FOR UNKNOWN INDICATION
     Route: 058
     Dates: start: 20160331
  19. SERENASE [Concomitant]
     Active Substance: HALOPERIDOL
     Indication: PRODUCT USED FOR UNKNOWN INDICATION
     Route: 058
     Dates: start: 20160405
  20. TEMASLA [Concomitant]
     Indication: PRODUCT USED FOR UNKNOWN INDICATION
     Route: 048
     Dates: start: 20160405
  21. NYSTATIN. [Concomitant]
     Active Substance: NYSTATIN
     Indication: PRODUCT USED FOR UNKNOWN INDICATION
     Dosage: 400000 IE
     Route: 048
     Dates: start: 20160215, end: 20160216
  22. PREDNISONE. [Concomitant]
     Active Substance: PREDNISONE
     Indication: PRODUCT USED FOR UNKNOWN INDICATION
     Dosage: 25MG
     Route: 048
     Dates: start: 20160210, end: 20160210
  23. GLUCOSE [Concomitant]
     Active Substance: DEXTROSE
     Indication: PRODUCT USED FOR UNKNOWN INDICATION
     Dosage: 55GM
     Route: 041
     Dates: start: 20160204, end: 20160208
  24. CITALOPRAM [Concomitant]
     Active Substance: CITALOPRAM HYDROBROMIDE
     Indication: DEPRESSION
     Dosage: 20MG
     Route: 048
     Dates: start: 20160211
  25. PHILEMON [Concomitant]
     Indication: LIGAMENT DISORDER
     Dosage: 560MICROGM
     Route: 065
     Dates: start: 20160210
  26. CASPOFUNGIN [Concomitant]
     Active Substance: CASPOFUNGIN
     Indication: PRODUCT USED FOR UNKNOWN INDICATION
     Route: 065
  27. IBRUTINIB [Suspect]
     Active Substance: IBRUTINIB
     Indication: MANTLE CELL LYMPHOMA
     Route: 065
     Dates: start: 20160210, end: 20160323
  28. PRIMPERAN [Concomitant]
     Active Substance: METOCLOPRAMIDE HYDROCHLORIDE
     Dosage: 5 MG/ML INJ. LIQUID SOLUTION?30MG
     Route: 041
     Dates: start: 20160329
  29. ROBLNUL [Concomitant]
     Indication: PRODUCT USED FOR UNKNOWN INDICATION
     Route: 058
     Dates: start: 20160405
  30. REVLIMID [Suspect]
     Active Substance: LENALIDOMIDE
     Route: 048
  31. FORSEG [Concomitant]
     Dosage: 15MG
     Route: 048
     Dates: start: 20160210
  32. BIOCLAVID [Concomitant]
     Active Substance: AMOXICILLIN\CLAVULANIC ACID
     Indication: PRODUCT USED FOR UNKNOWN INDICATION
     Route: 048
     Dates: start: 20151225, end: 20160317
  33. VANCOMYCIN [Concomitant]
     Active Substance: VANCOMYCIN
     Indication: PRODUCT USED FOR UNKNOWN INDICATION
     Route: 065
  34. RITUXIMAB [Suspect]
     Active Substance: RITUXIMAB
     Indication: MANTLE CELL LYMPHOMA
     Route: 065
     Dates: start: 20160210, end: 20160303
  35. MEROPENEM. [Concomitant]
     Active Substance: MEROPENEM
     Dosage: 3000MG
     Route: 041
     Dates: start: 20160208, end: 20160208
  36. CIPROFLOXACIN. [Concomitant]
     Active Substance: CIPROFLOXACIN
     Dosage: 1000MG
     Route: 048
     Dates: start: 20160111, end: 20160115
  37. KALEORID [Concomitant]
     Active Substance: POTASSIUM CHLORIDE
     Indication: PRODUCT USED FOR UNKNOWN INDICATION
     Dosage: 3000MG
     Route: 048
     Dates: start: 20160206, end: 20160306
  38. FORSEG [Concomitant]
     Indication: PRODUCT USED FOR UNKNOWN INDICATION
     Dosage: 560MG
     Route: 048
     Dates: start: 20160210
  39. TAVEGIL [Concomitant]
     Active Substance: CLEMASTINE FUMARATE
     Indication: PRODUCT USED FOR UNKNOWN INDICATION
     Dosage: 1MG
     Route: 048
     Dates: start: 20160210, end: 20160210
  40. PINEX [Concomitant]
     Active Substance: ACETAMINOPHEN
     Indication: PAIN
     Dosage: 1000MG
     Route: 048
     Dates: start: 20160210, end: 20160210
  41. TAZOCIN [Concomitant]
     Active Substance: PIPERACILLIN SODIUM\TAZOBACTAM SODIUM
     Indication: PRODUCT USED FOR UNKNOWN INDICATION
     Dosage: 12000MG
     Route: 041
     Dates: start: 20160202, end: 20160208

REACTIONS (3)
  - Gastrointestinal disorder [Not Recovered/Not Resolved]
  - Mantle cell lymphoma [Fatal]
  - Pneumonia [Recovered/Resolved with Sequelae]

NARRATIVE: CASE EVENT DATE: 20160214
